FAERS Safety Report 17142090 (Version 1)
Quarter: 2019Q4

REPORT INFORMATION
  Report Type: Report from Study
  Country: None (occurrence: US)
  Receive Date: 20191211
  Receipt Date: 20191211
  Transmission Date: 20200122
  Serious: Yes (Other)
  Sender: FDA-Public Use
  Company Number: US-ABBVIE-19K-163-3164269-00

PATIENT
  Age: 83 Year
  Sex: Male

DRUGS (3)
  1. IMBRUVICA [Suspect]
     Active Substance: IBRUTINIB
     Dosage: 420 MG, QD
     Route: 048
     Dates: start: 20191010
  2. IMBRUVICA [Suspect]
     Active Substance: IBRUTINIB
     Indication: LYMPHOCYTIC LEUKAEMIA
     Dosage: UNK
     Route: 065
     Dates: start: 20190711
  3. IMBRUVICA [Suspect]
     Active Substance: IBRUTINIB
     Route: 048

REACTIONS (9)
  - Nerve compression [Unknown]
  - Product dose omission [Unknown]
  - Arthralgia [Recovered/Resolved]
  - Neck pain [Unknown]
  - Fatigue [Unknown]
  - Migraine [Unknown]
  - Rash macular [Unknown]
  - Myelopathy [Unknown]
  - Joint swelling [Unknown]

NARRATIVE: CASE EVENT DATE: 201907
